FAERS Safety Report 18694358 (Version 1)
Quarter: 2021Q1

REPORT INFORMATION
  Report Type: Spontaneous
  Country: US (occurrence: US)
  Receive Date: 20210104
  Receipt Date: 20210104
  Transmission Date: 20210419
  Serious: Yes (Hospitalization)
  Sender: FDA-Public Use
  Company Number: US-MYLANLABS-2020M1106290

PATIENT
  Age: 76 Year
  Sex: Female

DRUGS (1)
  1. MORPHINE [Suspect]
     Active Substance: MORPHINE
     Indication: NECK PAIN
     Dosage: 30 MILLIGRAM, QD
     Route: 048
     Dates: start: 201807, end: 201807

REACTIONS (2)
  - Toxicity to various agents [Recovering/Resolving]
  - Unresponsive to stimuli [Recovering/Resolving]

NARRATIVE: CASE EVENT DATE: 201807
